FAERS Safety Report 9848434 (Version 1)
Quarter: 2014Q1

REPORT INFORMATION
  Report Type: Spontaneous
  Country: US (occurrence: None)
  Receive Date: 20140127
  Receipt Date: 20140127
  Transmission Date: 20141002
  Serious: Yes (Other)
  Sender: FDA-Public Use
  Company Number: None

PATIENT
  Age: 53 Year
  Sex: Female

DRUGS (1)
  1. HUMIRA [Suspect]
     Dosage: 40 MG EVERY 2 WEEKS SUBUTANEOUSLY
     Route: 058
     Dates: start: 20120910, end: 20140110

REACTIONS (1)
  - Hospitalisation [None]
